FAERS Safety Report 5322010-2 (Version None)
Quarter: 2007Q2

REPORT INFORMATION
  Report Type: 
  Country: None (occurrence: None)
  Receive Date: 20070508
  Receipt Date: 20070508
  Transmission Date: 20071010
  Serious: Yes (Hospitalization)
  Sender: FDA-Public Use
  Company Number: None

PATIENT
  Sex: Female
  Weight: 58.514 kg

DRUGS (1)
  1. ALDARA [Suspect]
     Indication: ACTINIC KERATOSIS
     Dosage: TOP
     Route: 061
     Dates: start: 20070401, end: 20070421

REACTIONS (7)
  - ANOREXIA [None]
  - ARTHRALGIA [None]
  - COUGH [None]
  - MUCOSAL INFLAMMATION [None]
  - NASAL CONGESTION [None]
  - ORAL INTAKE REDUCED [None]
  - PYREXIA [None]
